FAERS Safety Report 9547005 (Version 2)
Quarter: 2014Q1

REPORT INFORMATION
  Report Type: Spontaneous
  Country: US (occurrence: None)
  Receive Date: 20130524
  Receipt Date: 20130724
  Transmission Date: 20141002
  Serious: No
  Sender: FDA-Public Use
  Company Number: PHEH2012US024523

PATIENT
  Age: 55 Year
  Sex: Female

DRUGS (10)
  1. GILENYA (FINGOLIMOD) CAPSULE, 0.5MG [Suspect]
     Indication: MULTIPLE SCLEROSIS
     Route: 048
     Dates: start: 20121211
  2. LISINOPRIL [Concomitant]
  3. VALTREX (VALACICLOVIR HYDROCHLORIDE) [Concomitant]
  4. PROTONIX (PANTOPRAZOLE SODIUM SESQUIHYDRATE) [Concomitant]
  5. NORETHINDRONE (NORETHISTERONE) [Concomitant]
  6. PANTOPRAZOLE [Concomitant]
  7. VALACICLOVIR [Concomitant]
  8. DROSPIRENONE W/ESTRADIOL (DROSPIRENONE, ESTRADIOL) [Concomitant]
  9. RANITIDINE (RANITIDINE HYDROCHLORIDE) [Concomitant]
  10. PHENYLEPHRINE [Concomitant]

REACTIONS (5)
  - Fatigue [None]
  - Headache [None]
  - Peripheral coldness [None]
  - Rash [None]
  - Alopecia [None]
